FAERS Safety Report 8089390-9 (Version None)
Quarter: 2012Q1

REPORT INFORMATION
  Report Type: 
  Country: None (occurrence: None)
  Receive Date: 20120128
  Receipt Date: 20110711
  Transmission Date: 20120608
  Serious: No
  Sender: FDA-Public Use
  Company Number: US-ABBOTT-11P-163-0838298-00

PATIENT
  Sex: Female
  Weight: 90.8 kg

DRUGS (4)
  1. FOLIC ACID [Concomitant]
     Indication: VITAMIN SUPPLEMENTATION
     Route: 048
  2. HUMIRA [Suspect]
     Indication: RHEUMATOID ARTHRITIS
     Route: 058
     Dates: start: 20110401
  3. METHOTREXATE [Suspect]
     Indication: RHEUMATOID ARTHRITIS
     Dosage: FOUR 2.5MG TABLETS WEEKLY
     Route: 048
     Dates: start: 20100101
  4. UNKNOWN BLOOD PRESSURE MEDICATION [Concomitant]
     Indication: HYPERTENSION
     Route: 048

REACTIONS (4)
  - ANXIETY [None]
  - HAEMOPTYSIS [None]
  - COUGH [None]
  - THROAT IRRITATION [None]
